FAERS Safety Report 4845994-5 (Version None)
Quarter: 2005Q4

REPORT INFORMATION
  Report Type: 
  Country: None (occurrence: None)
  Receive Date: 20051206
  Receipt Date: 20050829
  Transmission Date: 20060501
  Serious: Yes (Other)
  Sender: FDA-Public Use
  Company Number: US-AVENTIS-200516820US

PATIENT
  Weight: 179 kg

DRUGS (2)
  1. LOVENOX [Suspect]
     Indication: DEEP VEIN THROMBOSIS
  2. COUMADIN [Concomitant]
     Dosage: DOSE: UNK

REACTIONS (1)
  - ABDOMINAL PAIN [None]
